FAERS Safety Report 16444521 (Version 1)
Quarter: 2019Q3

REPORT INFORMATION
  Report Type: Spontaneous
  Country: US (occurrence: US)
  Receive Date: 20190617
  Receipt Date: 20190617
  Transmission Date: 20191004
  Serious: No
  Sender: FDA-Public Use
  Company Number: None

PATIENT
  Age: 38 Year
  Sex: Female
  Weight: 99 kg

DRUGS (3)
  1. TYLENOL [Concomitant]
     Active Substance: ACETAMINOPHEN
  2. SUN BUM SUNSCREEN LIP BALM BROAD SPECTRUM SPF 30 MANGO [Suspect]
     Active Substance: AVOBENZONE\HOMOSALATE\OCTINOXATE\OCTISALATE
     Indication: PROPHYLAXIS AGAINST SOLAR RADIATION
     Dates: start: 20190611, end: 20190611
  3. IBUPROFEN. [Concomitant]
     Active Substance: IBUPROFEN

REACTIONS (8)
  - Lip haemorrhage [None]
  - Lip dry [None]
  - Angular cheilitis [None]
  - Cheilitis [None]
  - Skin exfoliation [None]
  - Lip swelling [None]
  - Lip pain [None]
  - Lip blister [None]

NARRATIVE: CASE EVENT DATE: 20190611
